FAERS Safety Report 11492396 (Version 1)
Quarter: 2015Q3

REPORT INFORMATION
  Report Type: Spontaneous
  Country: US (occurrence: None)
  Receive Date: 20150910
  Receipt Date: 20150910
  Transmission Date: 20151125
  Serious: Yes (Other)
  Sender: FDA-Public Use
  Company Number: None

PATIENT
  Age: 65 Year
  Sex: Male

DRUGS (1)
  1. XTANDI [Suspect]
     Active Substance: ENZALUTAMIDE
     Indication: PROSTATE CANCER
     Dosage: ROUTE: ORAL 047  DOSE FORM: ORAL  FREQUENCY: QD
     Route: 048
     Dates: start: 201502

REACTIONS (3)
  - Emotional disorder [None]
  - Weight decreased [None]
  - Depression [None]

NARRATIVE: CASE EVENT DATE: 20150909
